FAERS Safety Report 4472880-5 (Version None)
Quarter: 2004Q4

REPORT INFORMATION
  Report Type: 
  Country: None (occurrence: None)
  Receive Date: 20041012
  Receipt Date: 20041012
  Transmission Date: 20050328
  Serious: Yes (Other)
  Sender: FDA-Public Use
  Company Number: None

PATIENT
  Age: 35 Year
  Sex: Female

DRUGS (2)
  1. XANAX [Suspect]
     Indication: ANXIETY
     Dosage: 1 MG PO BID
     Route: 048
  2. XANAX [Suspect]
     Indication: DEPRESSION
     Dosage: 1 MG PO BID
     Route: 048

REACTIONS (1)
  - DRUG INEFFECTIVE [None]
